FAERS Safety Report 8348753-4 (Version None)
Quarter: 2012Q2

REPORT INFORMATION
  Report Type: 
  Country: None (occurrence: None)
  Receive Date: 20120510
  Receipt Date: 20120508
  Transmission Date: 20120825
  Serious: No
  Sender: FDA-Public Use
  Company Number: US-PFIZER INC-2012078694

PATIENT
  Sex: Female
  Weight: 68 kg

DRUGS (4)
  1. BONINE [Concomitant]
     Indication: NAUSEA
     Dosage: UNK
  2. CHANTIX [Suspect]
     Dosage: DAILY
     Route: 048
     Dates: end: 20120301
  3. ACIPHEX [Concomitant]
     Indication: GASTROOESOPHAGEAL REFLUX DISEASE
     Dosage: 20 MG, 2X/DAY
  4. CHANTIX [Suspect]
     Indication: SMOKING CESSATION THERAPY
     Dosage: 0.5 MG DAILY
     Route: 048
     Dates: start: 20120119

REACTIONS (3)
  - NAUSEA [None]
  - EMOTIONAL DISORDER [None]
  - ABDOMINAL DISCOMFORT [None]
